FAERS Safety Report 11679337 (Version 1)
Quarter: 2015Q4

REPORT INFORMATION
  Report Type: Report from Study
  Country: DE (occurrence: DE)
  Receive Date: 20151028
  Receipt Date: 20151028
  Transmission Date: 20160304
  Serious: Yes (Death, Other)
  Sender: FDA-Public Use
  Company Number: PHHY2015DE112976

PATIENT
  Sex: Female
  Weight: 50 kg

DRUGS (2)
  1. LETROZOLE. [Suspect]
     Active Substance: LETROZOLE
     Indication: BREAST CANCER
     Dosage: 2.5 MG, QD
     Route: 065
     Dates: start: 20131002
  2. NO TREATMENT RECEIVED [Suspect]
     Active Substance: UNSPECIFIED INGREDIENT
     Indication: BREAST CANCER
     Route: 065

REACTIONS (4)
  - Multi-organ failure [Fatal]
  - Metastases to liver [Unknown]
  - Metastases to lung [Unknown]
  - Metastases to lymph nodes [Unknown]
